FAERS Safety Report 9861986 (Version 3)
Quarter: 2014Q1

REPORT INFORMATION
  Report Type: Spontaneous
  Country: US (occurrence: US)
  Receive Date: 20140203
  Receipt Date: 20140211
  Transmission Date: 20141002
  Serious: Yes (Other)
  Sender: FDA-Public Use
  Company Number: US-DRREDDYS-USA/USA/14/0037445

PATIENT
  Age: 38 Year
  Sex: Male
  Weight: 108.96 kg

DRUGS (2)
  1. OMEPRAZOLE MAGNESIUM DELAYED RELEASE OTC [Suspect]
     Indication: ANTACID THERAPY
     Route: 048
     Dates: start: 20140112, end: 20140123
  2. OMEPRAZOLE MAGNESIUM DELAYED RELEASE OTC [Suspect]
     Indication: DYSPEPSIA

REACTIONS (3)
  - Anal fissure [Recovered/Resolved]
  - Constipation [Recovered/Resolved]
  - Extra dose administered [Unknown]
